FAERS Safety Report 4724699-5 (Version None)
Quarter: 2005Q3

REPORT INFORMATION
  Report Type: 
  Country: None (occurrence: None)
  Receive Date: 20050720
  Receipt Date: 20050720
  Transmission Date: 20060218
  Serious: Yes (Other)
  Sender: FDA-Public Use
  Company Number: None

PATIENT
  Age: 86 Year
  Sex: Male
  Weight: 55.3388 kg

DRUGS (17)
  1. FERRLECIT [Suspect]
     Indication: ANAEMIA
     Dosage: 125 MG    ONCE    INTRAVENOU
     Route: 042
     Dates: start: 20050717, end: 20050717
  2. ROCEPHIN [Concomitant]
  3. CLEOCIN [Concomitant]
  4. VENTOLIN [Concomitant]
  5. ACIDOPHILUS [Concomitant]
  6. PREVACID [Concomitant]
  7. NITROGLYCERIN [Concomitant]
  8. CORDARONE [Concomitant]
  9. ADVAIR DISKUS 100/50 [Concomitant]
  10. ATROVENT [Concomitant]
  11. NACL [Concomitant]
  12. TYLENOL [Concomitant]
  13. DULCOLAX [Concomitant]
  14. SURFAK [Concomitant]
  15. MORPHINE [Concomitant]
  16. ZOFRAN [Concomitant]
  17. DARVOCET-N 100 [Concomitant]

REACTIONS (3)
  - CHEST PAIN [None]
  - HYPERHIDROSIS [None]
  - TACHYCARDIA [None]
